FAERS Safety Report 6134859-7 (Version None)
Quarter: 2009Q1

REPORT INFORMATION
  Report Type: 
  Country: None (occurrence: None)
  Receive Date: 20090327
  Receipt Date: 20090319
  Transmission Date: 20090719
  Serious: Yes (Death)
  Sender: FDA-Public Use
  Company Number: JP-AVENTIS-200812657JP

PATIENT

DRUGS (2)
  1. TAXOTERE [Suspect]
     Dosage: DOSE: 60 MG
  2. TS-1 [Concomitant]

REACTIONS (3)
  - BONE MARROW FAILURE [None]
  - DIARRHOEA [None]
  - PYREXIA [None]
